FAERS Safety Report 15367175 (Version 1)
Quarter: 2018Q3

REPORT INFORMATION
  Report Type: Spontaneous
  Country: US (occurrence: US)
  Receive Date: 20180910
  Receipt Date: 20180910
  Transmission Date: 20181010
  Serious: No
  Sender: FDA-Public Use
  Company Number: US-ALLERGAN-1810217US

PATIENT
  Sex: Female

DRUGS (1)
  1. CARAFATE [Suspect]
     Active Substance: SUCRALFATE
     Indication: OESOPHAGEAL DISORDER
     Dosage: 1 GRAM (10 ML) BID
     Route: 048
     Dates: start: 20180221

REACTIONS (2)
  - Off label use [Unknown]
  - Drug prescribing error [Unknown]
